FAERS Safety Report 9242111 (Version 2)
Quarter: 2013Q2

REPORT INFORMATION
  Report Type: Spontaneous
  Country: TR (occurrence: TR)
  Receive Date: 20130419
  Receipt Date: 20130523
  Transmission Date: 20140414
  Serious: Yes (Death, Other)
  Sender: FDA-Public Use
  Company Number: TR-JNJFOC-20130410810

PATIENT
  Age: 51 Year
  Sex: Male

DRUGS (8)
  1. DOXORUBICIN HYDROCHLORIDE [Suspect]
     Indication: PLASMA CELL MYELOMA
     Route: 065
  2. DOXORUBICIN HYDROCHLORIDE [Suspect]
     Indication: PLASMA CELL MYELOMA
     Route: 065
  3. CYCLOPHOSPHAMIDE [Suspect]
     Indication: PLASMA CELL MYELOMA
     Route: 065
  4. BORTEZOMIB [Suspect]
     Indication: PLASMA CELL MYELOMA
     Route: 065
  5. DEXAMETHASONE [Suspect]
     Indication: PLASMA CELL MYELOMA
     Route: 065
  6. METHOTREXATE [Suspect]
     Indication: PLASMA CELL MYELOMA
     Route: 037
  7. RADIOTHERAPY [Suspect]
     Indication: PLASMA CELL MYELOMA
     Route: 065
  8. LENALIDOMIDE [Suspect]
     Indication: PLASMA CELL MYELOMA
     Route: 065

REACTIONS (4)
  - Sepsis [Fatal]
  - Plasma cell myeloma [Unknown]
  - Metastasis [Unknown]
  - Pancytopenia [Unknown]
